FAERS Safety Report 9880257 (Version 2)
Quarter: 2014Q2

REPORT INFORMATION
  Report Type: Report from Study
  Country: JP (occurrence: JP)
  Receive Date: 20140207
  Receipt Date: 20140402
  Transmission Date: 20141212
  Serious: Yes (Hospitalization, Other)
  Sender: FDA-Public Use
  Company Number: JP-BRISTOL-MYERS SQUIBB COMPANY-20123907

PATIENT
  Age: 45 Year
  Sex: Female
  Weight: 80 kg

DRUGS (5)
  1. ORENCIA FOR INJ 250 MG/VIAL [Suspect]
     Indication: RHEUMATOID ARTHRITIS
     Dosage: 15,29FEB12,02,27APR,01,29JUN,31AUG,03,31OCT,03,28DEC12,01,27FEB,01,26APR,03JUN,03,30AUG13
     Route: 041
     Dates: start: 20120201, end: 20131002
  2. METHOTREXATE [Suspect]
     Indication: RHEUMATOID ARTHRITIS
     Dosage: 10JAN07-30SEP12,10MG: 01OCT12
     Dates: start: 20070110
  3. FOLIAMIN [Concomitant]
     Dates: start: 20070110
  4. FOSAMAC [Concomitant]
     Dates: start: 20060619
  5. TAKEPRON [Concomitant]
     Dates: start: 20060619

REACTIONS (2)
  - Pyelonephritis [Recovering/Resolving]
  - Computerised tomogram thorax abnormal [Not Recovered/Not Resolved]
